FAERS Safety Report 11360396 (Version 1)
Quarter: 2015Q3

REPORT INFORMATION
  Report Type: Report from Study
  Country: US (occurrence: US)
  Receive Date: 20150810
  Receipt Date: 20150810
  Transmission Date: 20151125
  Serious: No
  Sender: FDA-Public Use
  Company Number: PHEH2014US021390

PATIENT
  Sex: Male

DRUGS (6)
  1. TYLENOL [Concomitant]
     Active Substance: ACETAMINOPHEN
     Indication: PRODUCT USED FOR UNKNOWN INDICATION
     Dosage: 2 DF, UNK
     Route: 065
  2. EXTAVIA [Suspect]
     Active Substance: INTERFERON BETA-1B
     Dosage: WEEKS 5 TO 6, 0.1875MG (0.75 ML)
     Route: 058
  3. BACLOFEN. [Concomitant]
     Active Substance: BACLOFEN
     Indication: PRODUCT USED FOR UNKNOWN INDICATION
     Route: 065
  4. EXTAVIA [Suspect]
     Active Substance: INTERFERON BETA-1B
     Indication: MULTIPLE SCLEROSIS
     Dosage: WEEKS 1 TO 2, 0.0625 MG (0.25 ML)
     Route: 058
     Dates: start: 20141018
  5. EXTAVIA [Suspect]
     Active Substance: INTERFERON BETA-1B
     Dosage: WEEKS 3 TO 4, 0.125MG (0.5 ML)
     Route: 058
  6. EXTAVIA [Suspect]
     Active Substance: INTERFERON BETA-1B
     Dosage: WEEKS 7 +, 0.25MG (1 ML)
     Route: 058
     Dates: end: 20141226

REACTIONS (10)
  - Influenza like illness [Unknown]
  - Feeling abnormal [Recovering/Resolving]
  - Overdose [Recovered/Resolved]
  - Bone pain [Not Recovered/Not Resolved]
  - Muscular weakness [Not Recovered/Not Resolved]
  - Multiple sclerosis [Recovering/Resolving]
  - Fall [Recovering/Resolving]
  - Arthralgia [Not Recovered/Not Resolved]
  - Malaise [Unknown]
  - Asthenia [Recovering/Resolving]
